FAERS Safety Report 21254501 (Version 1)
Quarter: 2022Q3

REPORT INFORMATION
  Report Type: Report from Study
  Country: US (occurrence: US)
  Receive Date: 20220825
  Receipt Date: 20220825
  Transmission Date: 20221026
  Serious: Yes (Death)
  Sender: FDA-Public Use
  Company Number: US-ABBVIE-22K-163-4514659-00

PATIENT
  Sex: Male

DRUGS (2)
  1. VENCLEXTA [Suspect]
     Active Substance: VENETOCLAX
     Indication: Adult T-cell lymphoma/leukaemia recurrent
     Dosage: WITH FOOD AND A FULL GLASS OF WATER AT THE SAME TIME EACH DAY
     Route: 048
     Dates: start: 20220304
  2. VENCLEXTA [Suspect]
     Active Substance: VENETOCLAX
     Indication: Human T-cell lymphotropic virus type I infection

REACTIONS (1)
  - Death [Fatal]
